FAERS Safety Report 5125807-7 (Version None)
Quarter: 2006Q4

REPORT INFORMATION
  Report Type: 
  Country: None (occurrence: None)
  Receive Date: 20061010
  Receipt Date: 20061010
  Transmission Date: 20070319
  Serious: Yes (Life-Threatening, Disabling, Other)
  Sender: FDA-Public Use
  Company Number: None

PATIENT
  Age: 41 Year
  Sex: Female
  Weight: 81.6475 kg

DRUGS (1)
  1. ALBUTEROL SULFATE 108 MCG ALBUTEROL HFA IVAX PHARMACEUTICALS [Suspect]
     Indication: ASTHMA

REACTIONS (3)
  - ASTHMA [None]
  - CONDITION AGGRAVATED [None]
  - PHARMACEUTICAL PRODUCT COMPLAINT [None]
